FAERS Safety Report 9714206 (Version 1)
Quarter: 2013Q4

REPORT INFORMATION
  Report Type: Spontaneous
  Country: US (occurrence: US)
  Receive Date: 20131126
  Receipt Date: 20131126
  Transmission Date: 20140711
  Serious: No
  Sender: FDA-Public Use
  Company Number: US-GILEAD-2008-0019303

PATIENT
  Age: 84 Year
  Sex: Female
  Weight: 55.34 kg

DRUGS (11)
  1. LETAIRIS [Suspect]
     Indication: PULMONARY ARTERIAL HYPERTENSION
     Route: 048
     Dates: start: 20080627, end: 20081124
  2. LETAIRIS [Suspect]
     Route: 048
  3. COUMADIN [Concomitant]
  4. LANOXIN [Concomitant]
  5. FUROSEMIDE [Concomitant]
  6. ASA LOW DOSE [Concomitant]
  7. ATENOLOL [Concomitant]
  8. ISOSORB MONO [Concomitant]
  9. KLOR-CON 10 [Concomitant]
  10. VYTORIN [Concomitant]
  11. ALPRAZOLAM [Concomitant]

REACTIONS (3)
  - Nausea [Recovered/Resolved]
  - Decreased appetite [Recovered/Resolved]
  - Anxiety [Recovered/Resolved]
